FAERS Safety Report 24191651 (Version 1)
Quarter: 2024Q3

REPORT INFORMATION
  Report Type: Report from Study
  Country: US (occurrence: US)
  Receive Date: 20240808
  Receipt Date: 20240808
  Transmission Date: 20241016
  Serious: Yes (Hospitalization)
  Sender: ABBVIE
  Company Number: US-ABBVIE-5865959

PATIENT
  Age: 71 Year
  Sex: Female

DRUGS (1)
  1. HUMIRA [Suspect]
     Active Substance: ADALIMUMAB
     Indication: Product used for unknown indication
     Route: 058
     Dates: start: 2017

REACTIONS (4)
  - Meningitis [Unknown]
  - Herpes zoster [Unknown]
  - Diplopia [Unknown]
  - Sepsis [Unknown]

NARRATIVE: CASE EVENT DATE: 20240601
